FAERS Safety Report 6401942-8 (Version None)
Quarter: 2009Q4

REPORT INFORMATION
  Report Type: 
  Country: None (occurrence: None)
  Receive Date: 20091015
  Receipt Date: 20091013
  Transmission Date: 20100525
  Serious: Yes (Hospitalization)
  Sender: FDA-Public Use
  Company Number: A0811580A

PATIENT
  Age: 73 Year
  Sex: Male

DRUGS (6)
  1. ADVAIR DISKUS 100/50 [Suspect]
     Indication: ASTHMA
     Dosage: 1PUFF TWICE PER DAY
     Route: 055
     Dates: start: 20060801
  2. SINGULAIR [Concomitant]
  3. LISINOPRIL [Concomitant]
  4. AVELOX [Concomitant]
  5. LIPITOR [Concomitant]
  6. TEGRETOL [Concomitant]

REACTIONS (9)
  - ABDOMINAL DISCOMFORT [None]
  - CHILLS [None]
  - DYSPHONIA [None]
  - DYSPNOEA [None]
  - FEELING OF BODY TEMPERATURE CHANGE [None]
  - LIP HAEMORRHAGE [None]
  - NAUSEA [None]
  - PNEUMONIA [None]
  - PYREXIA [None]
